FAERS Safety Report 17054796 (Version 1)
Quarter: 2019Q4

REPORT INFORMATION
  Report Type: Spontaneous
  Country: IT (occurrence: IT)
  Receive Date: 20191120
  Receipt Date: 20191120
  Transmission Date: 20200122
  Serious: Yes (Other)
  Sender: FDA-Public Use
  Company Number: IT-MYLANLABS-2019M1110742

PATIENT
  Age: 61 Year
  Sex: Female

DRUGS (6)
  1. VINCRISTINE [Suspect]
     Active Substance: VINCRISTINE
     Indication: IMMUNOCHEMOTHERAPY
     Dosage: 1.4 MG/M2 I.V, 26 WEEKS OF TREATMENT
     Route: 042
     Dates: start: 201301, end: 201306
  2. RITUXIMAB. [Suspect]
     Active Substance: RITUXIMAB
     Indication: IMMUNOCHEMOTHERAPY
     Dosage: 375 MG/M2 I.V , 26 WEEK OF TREATMENTRT
     Route: 042
     Dates: start: 201301, end: 201306
  3. LAMIVUDINE. [Suspect]
     Active Substance: LAMIVUDINE
     Indication: ANTIVIRAL PROPHYLAXIS
     Dosage: 100 MILLIGRAM, QD (100 MG/DAY)
     Route: 048
  4. CYCLOPHOSPHAMIDE. [Suspect]
     Active Substance: CYCLOPHOSPHAMIDE
     Indication: IMMUNOCHEMOTHERAPY
     Dosage: 750 MG/M2 I.V, 26 WEEKS OF TREATMENT
     Route: 042
     Dates: start: 201301, end: 201306
  5. DOXORUBICIN [Suspect]
     Active Substance: DOXORUBICIN
     Indication: IMMUNOCHEMOTHERAPY
     Dosage: 50 MG/M2 I.V , 26 WEEKS OF TREATMENTS
     Route: 042
     Dates: start: 201301, end: 201306
  6. PREDNISONE. [Suspect]
     Active Substance: PREDNISONE
     Indication: IMMUNOCHEMOTHERAPY
     Dosage: 100 MG OS DAILY, 26 WEEKS OF TREATEMNT
     Dates: start: 201301, end: 201306

REACTIONS (4)
  - Hepatitis B reactivation [Recovered/Resolved]
  - Hepatitis B surface antigen positive [Recovered/Resolved]
  - Transaminases increased [Recovered/Resolved]
  - Hepatitis B DNA assay positive [Recovered/Resolved]
